FAERS Safety Report 9445247 (Version 2)
Quarter: 2013Q3

REPORT INFORMATION
  Report Type: Report from Study
  Country: JP (occurrence: JP)
  Receive Date: 20130807
  Receipt Date: 20130904
  Transmission Date: 20140515
  Serious: Yes (Hospitalization)
  Sender: FDA-Public Use
  Company Number: JP-GLAXOSMITHKLINE-B0912902A

PATIENT
  Age: 73 Year
  Sex: Female
  Weight: 27 kg

DRUGS (7)
  1. VOTRIENT [Suspect]
     Indication: MYXOFIBROSARCOMA
     Dosage: 400MG PER DAY
     Route: 048
     Dates: start: 20121204, end: 20121205
  2. VOTRIENT [Suspect]
     Indication: MYXOFIBROSARCOMA
     Dosage: 600MG PER DAY
     Route: 048
     Dates: start: 20121206, end: 20130114
  3. VOTRIENT [Suspect]
     Indication: MYXOFIBROSARCOMA
     Dosage: 400MG PER DAY
     Route: 048
     Dates: start: 20130201, end: 20130321
  4. VOTRIENT [Suspect]
     Indication: MYXOFIBROSARCOMA
     Dosage: 400MG PER DAY
     Route: 048
     Dates: start: 20130330, end: 20130426
  5. FAMOTIDINE [Concomitant]
     Indication: GASTRIC ULCER
     Route: 065
  6. FENTOS [Concomitant]
     Indication: MYXOFIBROSARCOMA
     Route: 061
  7. CYMBALTA [Concomitant]
     Indication: MYXOFIBROSARCOMA
     Route: 048

REACTIONS (4)
  - Diarrhoea [Recovered/Resolved]
  - Dehydration [Recovered/Resolved]
  - Hypertension [Not Recovered/Not Resolved]
  - Malaise [Not Recovered/Not Resolved]
